FAERS Safety Report 5605472-2 (Version None)
Quarter: 2008Q1

REPORT INFORMATION
  Report Type: 
  Country: None (occurrence: None)
  Receive Date: 20080124
  Receipt Date: 20080124
  Transmission Date: 20080703
  Serious: Yes (Hospitalization)
  Sender: FDA-Public Use
  Company Number: None

PATIENT
  Age: 69 Year
  Sex: Male

DRUGS (1)
  1. CEFEPIME [Suspect]
     Indication: UPPER RESPIRATORY TRACT INFECTION
     Dosage: 2 GFM BID IV
     Route: 042
     Dates: start: 20071224, end: 20071230

REACTIONS (1)
  - RASH [None]
